FAERS Safety Report 4724543-6 (Version None)
Quarter: 2005Q3

REPORT INFORMATION
  Report Type: 
  Country: None (occurrence: None)
  Receive Date: 20050719
  Receipt Date: 20050719
  Transmission Date: 20060218
  Serious: Yes (Hospitalization)
  Sender: FDA-Public Use
  Company Number: None

PATIENT
  Age: 20 Year
  Sex: Female

DRUGS (2)
  1. FLAGYL [Suspect]
     Dosage: TWO PO BID X 7 DAYS
     Route: 048
     Dates: start: 20050715, end: 20050716
  2. NYSTATIN/TMC CREAM [Concomitant]

REACTIONS (3)
  - CHEST DISCOMFORT [None]
  - DYSPNOEA [None]
  - URTICARIA [None]
